FAERS Safety Report 7396571-6 (Version None)
Quarter: 2011Q2

REPORT INFORMATION
  Report Type: 
  Country: None (occurrence: None)
  Receive Date: 20110406
  Receipt Date: 20110322
  Transmission Date: 20111010
  Serious: Yes (Other)
  Sender: FDA-Public Use
  Company Number: PHHY2011SG25490

PATIENT
  Sex: Male
  Weight: 126 kg

DRUGS (4)
  1. RASILEZ HCT [Suspect]
     Indication: ESSENTIAL HYPERTENSION
     Dosage: 300/12.5 MG
     Route: 048
     Dates: start: 20101001
  2. RASILEZ HCT [Suspect]
     Indication: PROTEINURIA
  3. DIOVAN [Concomitant]
     Indication: HYPERTENSION
     Dosage: 160 MG, QD
     Route: 048
  4. EXFORGE [Concomitant]
     Indication: HYPERTENSION
     Dosage: 10/160 ONCE A DAY
     Route: 048

REACTIONS (2)
  - PROTEINURIA [None]
  - URINE ALBUMIN/CREATININE RATIO INCREASED [None]
